FAERS Safety Report 8177170-5 (Version None)
Quarter: 2012Q1

REPORT INFORMATION
  Report Type: 
  Country: None (occurrence: None)
  Receive Date: 20120301
  Receipt Date: 20120223
  Transmission Date: 20120608
  Serious: Yes (Hospitalization)
  Sender: FDA-Public Use
  Company Number: FR-UCBSA-038150

PATIENT
  Age: 74 Year
  Sex: Female

DRUGS (7)
  1. XARELTO [Suspect]
     Indication: PROPHYLAXIS
     Route: 048
     Dates: start: 20110521, end: 20110524
  2. LEXOMIL [Concomitant]
  3. PREDNISOLONE [Concomitant]
     Route: 048
  4. CELESTONE [Concomitant]
     Route: 048
  5. ACETAMINOPHEN W/ CODEINE [Concomitant]
     Route: 048
  6. NEXIUM [Concomitant]
     Route: 048
  7. CIMZIA [Suspect]
     Indication: RHEUMATOID ARTHRITIS
     Route: 058
     Dates: end: 20110407

REACTIONS (6)
  - BONE MARROW BASOPHILIC LEUKOCYTE COUNT INCREASED [None]
  - VENOUS THROMBOSIS [None]
  - ANAEMIA [None]
  - RED BLOOD CELL COUNT DECREASED [None]
  - HAEMATOCRIT DECREASED [None]
  - DRUG INEFFECTIVE [None]
